FAERS Safety Report 7490787-6 (Version None)
Quarter: 2011Q2

REPORT INFORMATION
  Report Type: 
  Country: None (occurrence: None)
  Receive Date: 20110519
  Receipt Date: 20110421
  Transmission Date: 20111010
  Serious: Yes (Hospitalization, Other)
  Sender: FDA-Public Use
  Company Number: US-BAYER-201036502NA

PATIENT
  Age: 18 Year
  Sex: Female
  Weight: 110 kg

DRUGS (8)
  1. NSAID'S [Concomitant]
     Dosage: UNK
     Route: 048
     Dates: start: 20000101, end: 20100920
  2. ORTHO TRI-CYCLEN [Concomitant]
     Route: 048
  3. GINSENG [Concomitant]
     Route: 048
  4. YASMIN [Suspect]
     Indication: CONTRACEPTION
     Dosage: UNK
     Dates: start: 20011112, end: 20031216
  5. SINGULAIR [Concomitant]
     Route: 048
  6. FERROUS SULFATE TAB [Concomitant]
     Route: 048
  7. IBUPROFEN [Concomitant]
     Route: 048
  8. RHINOCORT [Concomitant]

REACTIONS (2)
  - ABDOMINAL PAIN [None]
  - CHOLELITHIASIS [None]
